FAERS Safety Report 8159705-1 (Version None)
Quarter: 2012Q1

REPORT INFORMATION
  Report Type: 
  Country: None (occurrence: None)
  Receive Date: 20120223
  Receipt Date: 20120209
  Transmission Date: 20120608
  Serious: Yes (Other)
  Sender: FDA-Public Use
  Company Number: US-WATSON-2012-02615

PATIENT
  Age: 71 Year
  Sex: Male

DRUGS (1)
  1. PREDNISONE TAB [Suspect]
     Indication: SYSTEMIC LUPUS ERYTHEMATOSUS
     Dosage: X 21 DAYS
     Route: 065

REACTIONS (3)
  - MEMORY IMPAIRMENT [None]
  - DELIRIUM [None]
  - PSYCHIATRIC SYMPTOM [None]
